FAERS Safety Report 9741028 (Version 3)
Quarter: 2014Q2

REPORT INFORMATION
  Report Type: Spontaneous
  Country: US (occurrence: US)
  Receive Date: 20131209
  Receipt Date: 20140421
  Transmission Date: 20141212
  Serious: Yes (Death)
  Sender: FDA-Public Use
  Company Number: US-PFIZER INC-2013351152

PATIENT
  Age: 62 Year
  Sex: Female

DRUGS (15)
  1. ALPRAZOLAM [Suspect]
     Indication: ANXIETY
     Dosage: HALF A TABLET OF 2MG IN DAYTIME AND 2MG AT NIGHT
     Route: 048
  2. ZIPRASIDONE HCL [Interacting]
     Dosage: 80MG IN THE MORNING AND 160MG (80MG X 2) AT NIGHT, 2X/DAY
  3. DONEPEZIL [Interacting]
     Dosage: 10 MG, DAILY
     Route: 048
  4. METFORMIN HYDROCHLORIDE [Interacting]
     Indication: GLUCOSE TOLERANCE IMPAIRED
     Dosage: 500MG IN THE MORNING AND 1000MG (500MG X 2 TABLETS) IN THE EVENING, 2X/DAY
     Route: 048
  5. PROPANOLOL [Interacting]
     Dosage: 160 MG, DAILY
     Route: 048
  6. ZOCOR [Interacting]
     Dosage: UNK
  7. LOFIBRA [Interacting]
     Indication: BLOOD CHOLESTEROL ABNORMAL
     Dosage: UNK
  8. VALPROIC ACID [Interacting]
     Dosage: UNK
  9. DIPHENHYDRAMINE [Interacting]
     Dosage: UNK
  10. LEVETIRACETAM [Interacting]
     Dosage: 250 MG, 2X/DAY
     Route: 048
  11. SIMVASTATIN [Interacting]
     Dosage: 40 MG, DAILY
     Route: 048
  12. ANASTROZOLE [Interacting]
     Dosage: 1 MG, DAILY
  13. DIVALPROEX [Interacting]
     Dosage: 750 MG (250MG X 3 TABLETS), DAILY
     Route: 048
  14. FENOFIBRATE [Interacting]
     Dosage: 200 MG, DAILY
     Route: 048
  15. SALSALATE [Interacting]
     Indication: ARTHRALGIA
     Dosage: 750 MG, AS NEEDED
     Route: 048

REACTIONS (3)
  - Intentional product misuse [Fatal]
  - Toxicity to various agents [Fatal]
  - Drug interaction [Fatal]
